FAERS Safety Report 6151517-3 (Version None)
Quarter: 2009Q2

REPORT INFORMATION
  Report Type: 
  Country: None (occurrence: None)
  Receive Date: 20090410
  Receipt Date: 20090403
  Transmission Date: 20091009
  Serious: Yes (Hospitalization)
  Sender: FDA-Public Use
  Company Number: PL-AMGEN-US339066

PATIENT
  Sex: Female
  Weight: 73.7 kg

DRUGS (6)
  1. ENBREL [Suspect]
     Indication: RHEUMATOID ARTHRITIS
     Route: 058
     Dates: start: 20070515
  2. HYDROXYZINE HYDROCHLORIDE [Concomitant]
     Indication: RHEUMATOID ARTHRITIS
     Dates: start: 20080201
  3. HYDROXYZINE HYDROCHLORIDE [Concomitant]
     Indication: INSOMNIA
  4. FOLIC ACID [Concomitant]
     Indication: RHEUMATOID ARTHRITIS
     Dates: start: 20070501
  5. METHOTREXATE [Concomitant]
     Indication: RHEUMATOID ARTHRITIS
     Dates: start: 20070501
  6. NIMESULIDE [Concomitant]
     Indication: RHEUMATOID ARTHRITIS
     Dates: start: 20080201

REACTIONS (2)
  - CEREBROVASCULAR ACCIDENT [None]
  - HEMIPARESIS [None]
